FAERS Safety Report 13547244 (Version 14)
Quarter: 2019Q3

REPORT INFORMATION
  Report Type: Spontaneous
  Country: US (occurrence: US)
  Receive Date: 20170515
  Receipt Date: 20190806
  Transmission Date: 20191004
  Serious: Yes (Hospitalization)
  Sender: FDA-Public Use
  Company Number: US-ACTELION-A-NJ2017-153373

PATIENT
  Age: 1 Year
  Sex: Female

DRUGS (3)
  1. TRACLEER [Suspect]
     Active Substance: BOSENTAN
     Dosage: 15.625 MG, BID
     Route: 048
     Dates: start: 20161109, end: 20190713
  2. TRACLEER [Suspect]
     Active Substance: BOSENTAN
     Dosage: 5 ML, BID (6.25 MG/ML)
     Route: 048
  3. TRACLEER [Suspect]
     Active Substance: BOSENTAN
     Indication: PULMONARY ARTERIAL HYPERTENSION
     Dosage: 32 MG, BID
     Route: 048
     Dates: start: 20161206, end: 20190713

REACTIONS (13)
  - Tracheobronchitis [Recovered/Resolved]
  - Respiratory distress [Unknown]
  - Catheterisation cardiac [Recovering/Resolving]
  - Tracheostomy malfunction [Unknown]
  - Transient ischaemic attack [Unknown]
  - Dyspnoea [Unknown]
  - Product use issue [Unknown]
  - Rhinovirus infection [Unknown]
  - Appendicitis [Unknown]
  - Tracheitis [Unknown]
  - Pulmonary artery therapeutic procedure [Unknown]
  - Pericardial effusion [Unknown]
  - Pleural effusion [Unknown]

NARRATIVE: CASE EVENT DATE: 20170424
